FAERS Safety Report 6687077-8 (Version None)
Quarter: 2010Q2

REPORT INFORMATION
  Report Type: 
  Country: None (occurrence: None)
  Receive Date: 20100419
  Receipt Date: 20100406
  Transmission Date: 20101027
  Serious: Yes (Hospitalization, Other)
  Sender: FDA-Public Use
  Company Number: DE-CELGENEUS-062-50794-10020649

PATIENT
  Age: 62 Year
  Sex: Female
  Weight: 54 kg

DRUGS (2)
  1. VIDAZA [Suspect]
     Route: 058
     Dates: start: 20090810, end: 20091230
  2. VIDAZA [Suspect]
     Route: 058
     Dates: start: 20090323, end: 20090721

REACTIONS (2)
  - AXONAL NEUROPATHY [None]
  - THROMBOCYTOPENIA [None]
